FAERS Safety Report 11058044 (Version 1)
Quarter: 2015Q2

REPORT INFORMATION
  Report Type: Spontaneous
  Country: GB (occurrence: GB)
  Receive Date: 20150423
  Receipt Date: 20150423
  Transmission Date: 20150821
  Serious: Yes (Other)
  Sender: FDA-Public Use
  Company Number: GB-ACCORD-030157

PATIENT
  Age: 47 Year
  Sex: Male
  Weight: 94.34 kg

DRUGS (1)
  1. ALLOPURINOL/ALLOPURINOL SODIUM [Suspect]
     Active Substance: ALLOPURINOL SODIUM
     Indication: GOUT
     Dosage: STARTED WITH 100 MG FROM 01-JAN-2010 TO AN UNKNOWN DATE OF 2014.
     Route: 048
     Dates: start: 2014, end: 20150330

REACTIONS (9)
  - Hypersensitivity [Recovering/Resolving]
  - Dermatitis allergic [Recovering/Resolving]
  - Onychoclasis [Unknown]
  - Lower respiratory tract infection [Unknown]
  - Pruritus [Recovering/Resolving]
  - Skin burning sensation [Recovering/Resolving]
  - Skin irritation [Unknown]
  - Cough [Not Recovered/Not Resolved]
  - Stevens-Johnson syndrome [Recovering/Resolving]

NARRATIVE: CASE EVENT DATE: 201411
